FAERS Safety Report 4594604-3 (Version None)
Quarter: 2005Q1

REPORT INFORMATION
  Report Type: 
  Country: None (occurrence: None)
  Receive Date: 20050301
  Receipt Date: 20041024
  Transmission Date: 20050727
  Serious: Yes (Life-Threatening)
  Sender: FDA-Public Use
  Company Number: US-BRISTOL-MYERS SQUIBB COMPANY-12743274

PATIENT
  Age: 73 Year
  Sex: Male

DRUGS (4)
  1. ERBITUX [Suspect]
     Indication: NEOPLASM MALIGNANT
     Route: 042
     Dates: start: 20041022, end: 20041022
  2. ALLOPURINOL [Concomitant]
     Indication: PREMEDICATION
     Dates: start: 20041022, end: 20041022
  3. BENADRYL [Concomitant]
     Indication: PREMEDICATION
     Route: 042
     Dates: start: 20041022, end: 20041022
  4. TYLENOL (CAPLET) [Concomitant]
     Indication: PREMEDICATION
     Route: 048
     Dates: start: 20041022, end: 20041022

REACTIONS (1)
  - ANAPHYLACTIC REACTION [None]
